FAERS Safety Report 9691757 (Version 1)
Quarter: 2013Q4

REPORT INFORMATION
  Report Type: Report from Study
  Country: US (occurrence: US)
  Receive Date: 20131115
  Receipt Date: 20131115
  Transmission Date: 20140711
  Serious: Yes (Hospitalization, Other)
  Sender: FDA-Public Use
  Company Number: US-ABBVIE-13P-163-1167597-00

PATIENT
  Age: 54 Year
  Sex: Female

DRUGS (12)
  1. HUMIRA [Suspect]
     Indication: RHEUMATOID ARTHRITIS
     Dates: start: 2008, end: 201001
  2. HUMIRA [Suspect]
     Dates: start: 201001
  3. PROTONIX [Suspect]
     Indication: GASTROOESOPHAGEAL REFLUX DISEASE
  4. PROTONIX [Suspect]
  5. PLAQUENIL [Suspect]
     Indication: ARTHRALGIA
     Dates: end: 20130925
  6. PLAQUENIL [Suspect]
     Indication: JOINT SWELLING
  7. DETROL [Concomitant]
     Indication: ENURESIS
  8. FOLIC ACID [Concomitant]
     Indication: PRODUCT USED FOR UNKNOWN INDICATION
  9. KLONOPIN [Concomitant]
     Indication: ANXIETY
  10. WELLBUTRIN [Concomitant]
     Indication: SMOKING CESSATION THERAPY
  11. TRAZODONE [Concomitant]
     Indication: ANXIETY
  12. TRAZODONE [Concomitant]
     Indication: INSOMNIA

REACTIONS (9)
  - Loss of consciousness [Not Recovered/Not Resolved]
  - Fall [Not Recovered/Not Resolved]
  - Haemorrhage [Unknown]
  - Unevaluable event [Unknown]
  - Musculoskeletal disorder [Unknown]
  - Syncope [Unknown]
  - Vomiting [Unknown]
  - Oral mucosal discolouration [Recovered/Resolved]
  - Rheumatoid arthritis [Recovered/Resolved]
